FAERS Safety Report 25082190 (Version 2)
Quarter: 2025Q2

REPORT INFORMATION
  Report Type: Spontaneous
  Country: US (occurrence: US)
  Receive Date: 20250317
  Receipt Date: 20250417
  Transmission Date: 20250717
  Serious: No
  Sender: BIOGEN
  Company Number: US-BIOGEN-2024BI01285566

PATIENT
  Sex: Female

DRUGS (2)
  1. TYSABRI [Suspect]
     Active Substance: NATALIZUMAB
     Indication: Multiple sclerosis
     Dosage: INFUSED OVER 1 HOUR
     Route: 050
     Dates: start: 20221018, end: 20240802
  2. ACYCLOVIR [Concomitant]
     Active Substance: ACYCLOVIR
     Route: 050

REACTIONS (2)
  - Drug intolerance [Unknown]
  - White blood cell count increased [Unknown]
